FAERS Safety Report 5356432-0 (Version None)
Quarter: 2007Q2

REPORT INFORMATION
  Report Type: 
  Country: None (occurrence: None)
  Receive Date: 20070612
  Receipt Date: 20070529
  Transmission Date: 20071010
  Serious: Yes (Other)
  Sender: FDA-Public Use
  Company Number: 013821

PATIENT
  Age: 16 Year
  Sex: Female
  Weight: 29.5 kg

DRUGS (3)
  1. TRAZODONE HCL [Suspect]
     Indication: SOMNOLENCE
     Dosage: 0.75 TABLET, PRN, ORAL
     Route: 048
     Dates: start: 20070520, end: 20070531
  2. PROZAC [Concomitant]
  3. BUSPAR [Concomitant]

REACTIONS (5)
  - ANXIETY [None]
  - CONVERSION DISORDER [None]
  - DRUG INEFFECTIVE [None]
  - INSOMNIA [None]
  - SELF INJURIOUS BEHAVIOUR [None]
